FAERS Safety Report 7740871-4 (Version None)
Quarter: 2011Q3

REPORT INFORMATION
  Report Type: 
  Country: None (occurrence: None)
  Receive Date: 20110909
  Receipt Date: 20110901
  Transmission Date: 20111222
  Serious: Yes (Other)
  Sender: FDA-Public Use
  Company Number: PHHY2011FI77938

PATIENT
  Age: 58 Year
  Sex: Female

DRUGS (4)
  1. METOPROLOL TARTRATE [Concomitant]
     Dosage: 90 MG, UNK
  2. PACLITAXEL [Suspect]
     Indication: METASTASES TO BREAST
     Dosage: 80 MG/M2 ON DAYS 1, 8 AND 15 OF A 28-DAY CYCLE
  3. METOPROLOL TARTRATE [Concomitant]
     Indication: HYPERTENSION
     Dosage: 47.5 MG, UNK
  4. BEVACIZUMAB [Suspect]
     Indication: METASTASES TO BREAST
     Dosage: 10 MG/KG EVERY TWO WEEKS

REACTIONS (5)
  - DERMATITIS [None]
  - CUTANEOUS LUPUS ERYTHEMATOSUS [None]
  - RASH PAPULOSQUAMOUS [None]
  - HYPERTENSION [None]
  - RASH [None]
